FAERS Safety Report 7607508-6 (Version None)
Quarter: 2011Q3

REPORT INFORMATION
  Report Type: 
  Country: None (occurrence: None)
  Receive Date: 20110713
  Receipt Date: 20110630
  Transmission Date: 20111222
  Serious: Yes (Other)
  Sender: FDA-Public Use
  Company Number: AU-GENENTECH-321183

PATIENT
  Sex: Female

DRUGS (1)
  1. LUCENTIS [Suspect]
     Indication: MACULAR DEGENERATION
     Dosage: 0.05 ML, UNKNOWN
     Route: 031
     Dates: start: 20110301

REACTIONS (4)
  - EYE SWELLING [None]
  - CONTUSION [None]
  - VISUAL IMPAIRMENT [None]
  - MACULAR DEGENERATION [None]
